FAERS Safety Report 8292664-X (Version None)
Quarter: 2012Q2

REPORT INFORMATION
  Report Type: 
  Country: None (occurrence: None)
  Receive Date: 20120417
  Receipt Date: 20110729
  Transmission Date: 20120825
  Serious: No
  Sender: FDA-Public Use
  Company Number: US-ASTRAZENECA-2011SE34353

PATIENT
  Age: 64 Year
  Sex: Female

DRUGS (6)
  1. NEXIUM [Suspect]
     Route: 048
  2. NEXIUM [Suspect]
     Route: 048
  3. PROVENTIL [Concomitant]
  4. NEXIUM [Suspect]
     Dosage: DAILY
     Route: 048
  5. NEXIUM [Suspect]
     Dosage: TWO TIMES A DAY
     Route: 048
  6. ADVAIR DISKUS 100/50 [Suspect]
     Route: 065

REACTIONS (4)
  - ABDOMINAL DISCOMFORT [None]
  - NAUSEA [None]
  - THROAT IRRITATION [None]
  - INCORRECT DOSE ADMINISTERED [None]
